FAERS Safety Report 7515867-8 (Version None)
Quarter: 2011Q2

REPORT INFORMATION
  Report Type: 
  Country: None (occurrence: None)
  Receive Date: 20110520
  Receipt Date: 20110509
  Transmission Date: 20111010
  Serious: Yes (Other)
  Sender: FDA-Public Use
  Company Number: UTC-006480

PATIENT
  Age: 65 Year
  Sex: Male

DRUGS (16)
  1. ASPIRIN [Concomitant]
  2. PROGRAF [Concomitant]
  3. IBUPROFEN (ADVIL) [Concomitant]
  4. ZOCOR [Concomitant]
  5. COUMADIN [Concomitant]
  6. OXYGEN [Concomitant]
  7. OXYIR (PXYCODONE HYDROCHLORIDE) [Concomitant]
  8. SYNTHROID [Concomitant]
  9. REMODULIN [Suspect]
     Indication: PULMONARY HYPERTENSION
     Dosage: 57.6 UG/KG (0.04 UG/KG,1 IN 1 MIN), SUBCUTANEOUS; 43.2 UG/KG (0.03 UG/KG,1 IN 1 MIN),   SEE IMAGE
     Route: 058
     Dates: start: 20110101
  10. REMODULIN [Suspect]
     Indication: PULMONARY HYPERTENSION
     Dosage: 57.6 UG/KG (0.04 UG/KG,1 IN 1 MIN), SUBCUTANEOUS; 43.2 UG/KG (0.03 UG/KG,1 IN 1 MIN),   SEE IMAGE
     Route: 058
     Dates: start: 20110105
  11. NIAZID (ISONIAZID) [Concomitant]
  12. ADCIRCA [Concomitant]
  13. CLARITIN [Concomitant]
  14. LOVAZA [Concomitant]
  15. METOPROLOL TARTRATE [Concomitant]
  16. ALLOPURINOL [Concomitant]

REACTIONS (2)
  - IMPLANT SITE ABSCESS [None]
  - STAPHYLOCOCCAL ABSCESS [None]
